FAERS Safety Report 7627772-7 (Version None)
Quarter: 2011Q3

REPORT INFORMATION
  Report Type: 
  Country: None (occurrence: None)
  Receive Date: 20110721
  Receipt Date: 20110714
  Transmission Date: 20111222
  Serious: Yes (Other)
  Sender: FDA-Public Use
  Company Number: PHHY2011US62908

PATIENT
  Sex: Female

DRUGS (2)
  1. ZOMETA [Suspect]
     Indication: BREAST CANCER
  2. ZOMETA [Suspect]
     Indication: METASTASES TO BONE
     Dosage: 4 MG/5 ML,, QMO
     Route: 042

REACTIONS (4)
  - DEPRESSION [None]
  - METASTASES TO CENTRAL NERVOUS SYSTEM [None]
  - HEPATIC LESION [None]
  - VITAMIN D DEFICIENCY [None]
